FAERS Safety Report 23981417 (Version 2)
Quarter: 2024Q3

REPORT INFORMATION
  Report Type: Spontaneous
  Country: US (occurrence: US)
  Receive Date: 20240617
  Receipt Date: 20240718
  Transmission Date: 20241017
  Serious: No
  Sender: SANOFI AVENTIS
  Company Number: US-SA-SAC20240611000461

PATIENT
  Age: 62 Year
  Sex: Female
  Weight: 51.2 kg

DRUGS (2)
  1. DUPIXENT [Suspect]
     Active Substance: DUPILUMAB
     Indication: Asthma
     Dosage: 600 MG, 1X
     Route: 058
     Dates: start: 20240607, end: 20240607
  2. TRELEGY ELLIPTA [Concomitant]
     Active Substance: FLUTICASONE FUROATE\UMECLIDINIUM BROMIDE\VILANTEROL TRIFENATATE
     Indication: Asthma
     Dosage: 200 UG, QD (1 PUFF DAILY)
     Route: 048
     Dates: start: 20220927

REACTIONS (7)
  - Injection site urticaria [Recovered/Resolved]
  - Injection site erythema [Unknown]
  - Condition aggravated [Unknown]
  - Injection site swelling [Unknown]
  - Condition aggravated [Unknown]
  - Injection site pruritus [Unknown]
  - Condition aggravated [Unknown]

NARRATIVE: CASE EVENT DATE: 20240608
